FAERS Safety Report 4674509-X (Version None)
Quarter: 2005Q2

REPORT INFORMATION
  Report Type: 
  Country: None (occurrence: None)
  Receive Date: 20050526
  Receipt Date: 20040726
  Transmission Date: 20051028
  Serious: Yes (Life-Threatening, Hospitalization)
  Sender: FDA-Public Use
  Company Number: US-ROCHE-375884

PATIENT
  Age: 57 Year
  Sex: Female
  Weight: 80.7 kg

DRUGS (13)
  1. PEGASYS [Suspect]
     Indication: HEPATITIS C
     Route: 058
     Dates: start: 20040419, end: 20040714
  2. COPEGUS [Concomitant]
     Indication: HEPATITIS C
     Route: 048
     Dates: start: 20040419, end: 20040720
  3. PREMARIN [Concomitant]
  4. HYZAAR [Concomitant]
     Dosage: STRENGTH REPORTED AS 100/25.
  5. DILTIAZEM [Concomitant]
  6. ZYRTEC [Concomitant]
  7. PAXIL [Concomitant]
  8. GLUCOSAMINE [Concomitant]
  9. MILK THISTLE [Concomitant]
  10. MEDROL [Concomitant]
  11. UNKNOWN DRUG [Concomitant]
     Dosage: REPORTED AS DAF.
  12. CHONDROITIN [Concomitant]
  13. CALCIUM GLUCONATE [Concomitant]

REACTIONS (5)
  - ASTHMA [None]
  - DEEP VEIN THROMBOSIS [None]
  - DEPRESSION [None]
  - HEADACHE [None]
  - PULMONARY EMBOLISM [None]
